FAERS Safety Report 6296123-5 (Version None)
Quarter: 2009Q3

REPORT INFORMATION
  Report Type: 
  Country: None (occurrence: None)
  Receive Date: 20090731
  Receipt Date: 20090723
  Transmission Date: 20100115
  Serious: Yes (Life-Threatening)
  Sender: FDA-Public Use
  Company Number: 336896

PATIENT
  Age: 72 Year
  Sex: Female
  Weight: 60 kg

DRUGS (8)
  1. ACYCLOVIR [Suspect]
     Dosage: 300 MG, INTRAVENOUS, 700 MG, INTRAVENOUS
     Route: 042
     Dates: end: 20090713
  2. ACYCLOVIR [Suspect]
     Dosage: 300 MG, INTRAVENOUS, 700 MG, INTRAVENOUS
     Route: 042
     Dates: start: 20090706
  3. ADCAL-D3 [Concomitant]
  4. ALENDRONIC ACID [Concomitant]
  5. AZATHIOPRINE [Concomitant]
  6. FOLIC ACID [Concomitant]
  7. LISINOPRIL [Concomitant]
  8. PREDNISOLONE [Concomitant]

REACTIONS (6)
  - BLOOD CREATININE INCREASED [None]
  - CONFUSIONAL STATE [None]
  - CONVULSION [None]
  - DYSARTHRIA [None]
  - LEUKOENCEPHALOPATHY [None]
  - VASCULITIS [None]
